FAERS Safety Report 24564318 (Version 2)
Quarter: 2025Q1

REPORT INFORMATION
  Report Type: Spontaneous
  Country: DE (occurrence: DE)
  Receive Date: 20241030
  Receipt Date: 20250129
  Transmission Date: 20250409
  Serious: Yes (Hospitalization, Other)
  Sender: BRISTOL-MYERS SQUIBB COMPANY
  Company Number: DE-I.R.I.S.-S24013213

PATIENT
  Sex: Female

DRUGS (2)
  1. AZACITIDINE [Suspect]
     Active Substance: AZACITIDINE
     Indication: Acute myeloid leukaemia
     Dates: start: 2024
  2. IVOSIDENIB [Suspect]
     Active Substance: IVOSIDENIB
     Indication: Acute myeloid leukaemia
     Route: 048
     Dates: start: 2024

REACTIONS (2)
  - Differentiation syndrome [Unknown]
  - White blood cell count increased [Unknown]

NARRATIVE: CASE EVENT DATE: 20240101
